FAERS Safety Report 6661051-X (Version None)
Quarter: 2010Q1

REPORT INFORMATION
  Report Type: 
  Country: None (occurrence: None)
  Receive Date: 20100331
  Receipt Date: 20100323
  Transmission Date: 20100710
  Serious: Yes (Hospitalization)
  Sender: FDA-Public Use
  Company Number: CA-JNJFOC-20091207045

PATIENT
  Sex: Female

DRUGS (10)
  1. TYLENOL [Suspect]
     Route: 048
  2. TYLENOL [Suspect]
     Indication: FIBROMYALGIA
     Route: 048
  3. CALCIUM [Concomitant]
  4. RANITIDINE [Concomitant]
  5. RENEDIL [Concomitant]
  6. HYTRIN [Concomitant]
  7. PLAVIX [Concomitant]
  8. ASPIRIN [Concomitant]
  9. GRAVOL TAB [Concomitant]
  10. VITAMIN D [Concomitant]

REACTIONS (3)
  - ABDOMINAL PAIN UPPER [None]
  - DIVERTICULITIS [None]
  - MALAISE [None]
